FAERS Safety Report 11596391 (Version 1)
Quarter: 2015Q4

REPORT INFORMATION
  Report Type: Spontaneous
  Country: US (occurrence: None)
  Receive Date: 20151005
  Receipt Date: 20151005
  Transmission Date: 20160304
  Serious: Yes (Life-Threatening, Hospitalization)
  Sender: FDA-Public Use
  Company Number: None

PATIENT
  Age: 60 Year
  Sex: Female
  Weight: 74.84 kg

DRUGS (7)
  1. LISINOPRIL AND HYDROCHLOROTHIAZIDE [Suspect]
     Active Substance: HYDROCHLOROTHIAZIDE\LISINOPRIL
     Dosage: 1PILL ONCE DAILY
     Route: 048
     Dates: start: 20150922, end: 20150926
  2. VITAMIN B12 [Concomitant]
     Active Substance: CYANOCOBALAMIN
  3. PREDNISONE. [Concomitant]
     Active Substance: PREDNISONE
  4. FUROSEMIDE. [Concomitant]
     Active Substance: FUROSEMIDE
  5. DICLOFENACSOD DR [Concomitant]
  6. SAINT JOHNS WORT [Concomitant]
  7. IRON [Concomitant]
     Active Substance: IRON

REACTIONS (4)
  - Swelling face [None]
  - Job dissatisfaction [None]
  - Asthenia [None]
  - Speech disorder [None]

NARRATIVE: CASE EVENT DATE: 20150926
